FAERS Safety Report 21128621 (Version 1)
Quarter: 2022Q3

REPORT INFORMATION
  Report Type: Spontaneous
  Country: US (occurrence: None)
  Receive Date: 20220725
  Receipt Date: 20220725
  Transmission Date: 20221027
  Serious: Yes (Other)
  Sender: FDA-Public Use
  Company Number: US-ROCHE-3141543

PATIENT
  Sex: Male

DRUGS (8)
  1. ESBRIET [Suspect]
     Active Substance: PIRFENIDONE
     Indication: Idiopathic pulmonary fibrosis
     Dosage: TAKE 2 CAPSULES BY MOUTH 3 TIMES A DAY WITH FOOD FOR 7 DAYS.
     Route: 048
  2. BROMELAINS [Concomitant]
     Active Substance: BROMELAINS
  3. GINGER [Concomitant]
     Active Substance: GINGER
  4. ALFUZOSIN HYDROCHLORIDE [Concomitant]
     Active Substance: ALFUZOSIN HYDROCHLORIDE
  5. PREDNISONE [Concomitant]
     Active Substance: PREDNISONE
  6. ROSUVASTATIN [Concomitant]
     Active Substance: ROSUVASTATIN
  7. HERBALS\TURMERIC [Concomitant]
     Active Substance: HERBALS\TURMERIC
  8. VALSARTAN [Concomitant]
     Active Substance: VALSARTAN
     Dosage: 80-12.5 MG

REACTIONS (2)
  - Diarrhoea [Unknown]
  - Bladder cancer [Unknown]
